FAERS Safety Report 10263205 (Version 1)
Quarter: 2014Q2

REPORT INFORMATION
  Report Type: Report from Study
  Country: US (occurrence: US)
  Receive Date: 20140626
  Receipt Date: 20140626
  Transmission Date: 20141212
  Serious: No
  Sender: FDA-Public Use
  Company Number: US-MYLANLABS-2014S1007852

PATIENT
  Sex: Female

DRUGS (1)
  1. CLOZAPINE TABLETS [Suspect]
     Indication: SCHIZOPHRENIA
     Dosage: 100MG IN MORNING, 200MG AT BEDTIME
     Route: 048
     Dates: start: 20120504

REACTIONS (1)
  - Treatment noncompliance [Not Recovered/Not Resolved]
